FAERS Safety Report 7495072-4 (Version None)
Quarter: 2011Q2

REPORT INFORMATION
  Report Type: 
  Country: None (occurrence: None)
  Receive Date: 20110520
  Receipt Date: 20110510
  Transmission Date: 20111010
  Serious: Yes (Other)
  Sender: FDA-Public Use
  Company Number: US-BAYER-2011-041857

PATIENT
  Age: 22 Year
  Sex: Female

DRUGS (1)
  1. MAGNEVIST [Suspect]
     Indication: NUCLEAR MAGNETIC RESONANCE IMAGING
     Dosage: UNK
     Dates: start: 20110509, end: 20110509

REACTIONS (6)
  - URTICARIA [None]
  - RASH ERYTHEMATOUS [None]
  - PRURITUS [None]
  - SWOLLEN TONGUE [None]
  - NASAL CONGESTION [None]
  - SNEEZING [None]
